FAERS Safety Report 11170142 (Version 1)
Quarter: 2015Q2

REPORT INFORMATION
  Report Type: Report from Study
  Country: US (occurrence: US)
  Receive Date: 20150608
  Receipt Date: 20150608
  Transmission Date: 20150821
  Serious: No
  Sender: FDA-Public Use
  Company Number: US-AMGEN-USASL2015054971

PATIENT
  Age: 13 Year
  Sex: Male

DRUGS (1)
  1. ENBREL [Suspect]
     Active Substance: ETANERCEPT
     Indication: JUVENILE IDIOPATHIC ARTHRITIS
     Dosage: 25 MG, 2 TIMES/WK
     Route: 065
     Dates: start: 20141205

REACTIONS (7)
  - Retching [Not Recovered/Not Resolved]
  - Mobility decreased [Recovered/Resolved]
  - Malaise [Not Recovered/Not Resolved]
  - Back pain [Not Recovered/Not Resolved]
  - Upper respiratory tract infection [Recovered/Resolved]
  - Condition aggravated [Recovered/Resolved]
  - Nausea [Not Recovered/Not Resolved]

NARRATIVE: CASE EVENT DATE: 2015
